FAERS Safety Report 5933006-1 (Version None)
Quarter: 2008Q4

REPORT INFORMATION
  Report Type: 
  Country: None (occurrence: None)
  Receive Date: 20081023
  Receipt Date: 20060627
  Transmission Date: 20090506
  Serious: Yes (Hospitalization, Other)
  Sender: FDA-Public Use
  Company Number: 2006AL002177

PATIENT
  Age: 71 Year
  Sex: Female

DRUGS (10)
  1. GABAPENTIN [Suspect]
     Indication: DIABETIC NEUROPATHY
     Dosage: 300 MG; TID; PO
     Route: 048
     Dates: start: 20060228, end: 20060517
  2. ASPIRIN [Concomitant]
  3. CLONIDINE [Concomitant]
  4. FOLIC ACID [Concomitant]
  5. FUROSEMIDE [Concomitant]
  6. GLICLAZIDE [Concomitant]
  7. LEVOTHYROXINE SODIUM [Concomitant]
  8. METFORMIN HCL [Concomitant]
  9. SIMVASTATIN [Concomitant]
  10. TROSPIUM CHLORIDE [Concomitant]

REACTIONS (1)
  - OEDEMA PERIPHERAL [None]
